FAERS Safety Report 10370247 (Version 1)
Quarter: 2014Q3

REPORT INFORMATION
  Report Type: Spontaneous
  Country: US (occurrence: None)
  Receive Date: 20140806
  Receipt Date: 20140806
  Transmission Date: 20150326
  Serious: Yes (Hospitalization)
  Sender: FDA-Public Use
  Company Number: None

PATIENT
  Age: 58 Year
  Sex: Female
  Weight: 60.6 kg

DRUGS (8)
  1. OXALIPLATIN. [Concomitant]
     Active Substance: OXALIPLATIN
  2. IRINOTECAN [Concomitant]
     Active Substance: IRINOTECAN
  3. 5-FU [Suspect]
     Active Substance: FLUOROURACIL
     Indication: PANCREATIC CARCINOMA
     Route: 042
     Dates: start: 20140715, end: 20140717
  4. IRINOTECAN [Suspect]
     Active Substance: IRINOTECAN
  5. OXALIPLATIN. [Suspect]
     Active Substance: OXALIPLATIN
  6. LEUCOVORIN [Concomitant]
     Active Substance: LEUCOVORIN
  7. LEUCOVORIN [Concomitant]
     Active Substance: LEUCOVORIN
  8. FOLFIRINOX [Concomitant]
     Active Substance: FLUOROURACIL\IRINOTECAN\LEUCOVORIN\OXALIPLATIN

REACTIONS (1)
  - Diarrhoea [None]

NARRATIVE: CASE EVENT DATE: 20140724
